FAERS Safety Report 9526319 (Version 2)
Quarter: 2013Q3

REPORT INFORMATION
  Report Type: Spontaneous
  Country: JP (occurrence: JP)
  Receive Date: 20130916
  Receipt Date: 20130918
  Transmission Date: 20140515
  Serious: Yes (Hospitalization)
  Sender: FDA-Public Use
  Company Number: JP-PFIZER INC-2013263311

PATIENT
  Age: 27 Month
  Sex: 0

DRUGS (1)
  1. AMLODIN [Suspect]
     Dosage: UNK
     Route: 048

REACTIONS (2)
  - Accidental exposure to product [Unknown]
  - Aspiration [Unknown]
